FAERS Safety Report 13725488 (Version 2)
Quarter: 2017Q4

REPORT INFORMATION
  Report Type: Report from Study
  Country: FR (occurrence: FR)
  Receive Date: 20170707
  Receipt Date: 20171107
  Transmission Date: 20180320
  Serious: Yes (Hospitalization)
  Sender: FDA-Public Use
  Company Number: FR-ROCHE-1829524

PATIENT
  Age: 56 Year
  Sex: Male
  Weight: 66.5 kg

DRUGS (39)
  1. EPOETIN BETA [Suspect]
     Active Substance: ERYTHROPOIETIN
     Route: 042
     Dates: start: 20161226
  2. PARACETAMOL [Concomitant]
     Active Substance: ACETAMINOPHEN
     Route: 065
     Dates: start: 20081015
  3. ESOMEPRAZOLE [Concomitant]
     Active Substance: ESOMEPRAZOLE
     Route: 065
     Dates: start: 20081015
  4. PRAVASTATIN. [Concomitant]
     Active Substance: PRAVASTATIN
     Route: 065
     Dates: start: 20070415
  5. METHYLPREDNISOLONE. [Concomitant]
     Active Substance: METHYLPREDNISOLONE
     Route: 065
     Dates: start: 19920630
  6. LYSINE ACETYLSALICYLATE [Concomitant]
     Active Substance: ASPIRIN DL-LYSINE
     Route: 065
     Dates: start: 20160405
  7. CIPROFLOXACINE [Concomitant]
     Active Substance: CIPROFLOXACIN
     Route: 065
     Dates: start: 20161221, end: 20170201
  8. RIFAMPICINE [Concomitant]
     Active Substance: RIFAMPIN
     Route: 065
     Dates: start: 20161207, end: 20170104
  9. BROMAZEPAM [Concomitant]
     Active Substance: BROMAZEPAM
     Route: 065
     Dates: start: 20070615
  10. LACTULOSE. [Concomitant]
     Active Substance: LACTULOSE
     Route: 065
     Dates: start: 20161020
  11. CEFAZOLINE [Concomitant]
     Active Substance: CEFAZOLIN SODIUM
     Route: 065
     Dates: start: 20161019, end: 20161114
  12. OXYCODONE [Concomitant]
     Active Substance: OXYCODONE
     Route: 065
     Dates: start: 20161020
  13. LEVOCARNITINE. [Concomitant]
     Active Substance: LEVOCARNITINE
     Route: 065
     Dates: start: 20130809, end: 20170227
  14. CALCIUM ACETATE. [Concomitant]
     Active Substance: CALCIUM ACETATE
     Route: 065
     Dates: start: 20160711
  15. OFLOXACINE [Concomitant]
     Active Substance: OFLOXACIN
     Route: 065
     Dates: start: 20161019, end: 20161115
  16. EPOETIN BETA [Suspect]
     Active Substance: ERYTHROPOIETIN
     Route: 042
     Dates: start: 20161028
  17. EPOETIN BETA [Suspect]
     Active Substance: ERYTHROPOIETIN
     Route: 042
     Dates: start: 20170123
  18. CICLOSPORINE [Concomitant]
     Active Substance: CYCLOSPORINE
     Route: 065
     Dates: start: 20120322
  19. ERYTHROMYCIN. [Concomitant]
     Active Substance: ERYTHROMYCIN
     Route: 065
     Dates: start: 20160322
  20. PREGABALINE [Concomitant]
     Active Substance: PREGABALIN
     Route: 065
     Dates: start: 20140704
  21. REPAGLINIDE. [Concomitant]
     Active Substance: REPAGLINIDE
     Route: 065
     Dates: start: 20160914, end: 20161024
  22. EPOETIN BETA [Suspect]
     Active Substance: ERYTHROPOIETIN
     Route: 042
     Dates: start: 20161003
  23. EPOETIN BETA [Suspect]
     Active Substance: ERYTHROPOIETIN
     Route: 042
     Dates: start: 20161017
  24. LINEZOLIDE [Suspect]
     Active Substance: LINEZOLID
     Indication: PRODUCT USED FOR UNKNOWN INDICATION
     Route: 065
     Dates: start: 20161207, end: 20170104
  25. LAROSCORBINE [Concomitant]
     Active Substance: ASCORBIC ACID
     Route: 065
     Dates: start: 20141117
  26. BISOPROLOL [Concomitant]
     Active Substance: BISOPROLOL
     Dosage: STOPPED ON 14/OCT TO 17/OCT
     Route: 065
     Dates: start: 200704
  27. INSULIN GLARGINE [Concomitant]
     Active Substance: INSULIN GLARGINE
     Route: 065
     Dates: start: 20160521
  28. LIQUID PARAFFIN [Concomitant]
     Route: 065
     Dates: start: 20161129, end: 20170106
  29. EPOETIN BETA [Suspect]
     Active Substance: ERYTHROPOIETIN
     Route: 042
     Dates: start: 20160907
  30. INSULIN ASPART [Concomitant]
     Active Substance: INSULIN ASPART
     Route: 065
     Dates: start: 20160908
  31. COLECALCIFEROL [Concomitant]
     Active Substance: CHOLECALCIFEROL
     Route: 065
     Dates: start: 20170109
  32. MYCOPHENOLATE MOFETIL. [Suspect]
     Active Substance: MYCOPHENOLATE MOFETIL
     Indication: PRODUCT USED FOR UNKNOWN INDICATION
     Route: 065
     Dates: start: 20120322, end: 20170203
  33. RAMIPRIL. [Concomitant]
     Active Substance: RAMIPRIL
     Route: 065
     Dates: start: 20160406, end: 20161113
  34. PHOSPHOSORB [Concomitant]
     Active Substance: CALCIUM ACETATE
     Route: 065
     Dates: start: 20160711
  35. CALCIUM FOLINATE [Concomitant]
     Active Substance: LEUCOVORIN CALCIUM
     Route: 065
     Dates: start: 20160613
  36. ACID ASCORBINIC [Concomitant]
     Route: 065
     Dates: start: 20141117
  37. EPOETIN BETA [Suspect]
     Active Substance: ERYTHROPOIETIN
     Indication: NEPHROGENIC ANAEMIA
     Route: 042
     Dates: start: 20110620
  38. LINEZOLIDE [Suspect]
     Active Substance: LINEZOLID
     Route: 065
     Dates: start: 20161013, end: 20161014
  39. SERTRALINE [Concomitant]
     Active Substance: SERTRALINE HYDROCHLORIDE
     Route: 065
     Dates: start: 20070415

REACTIONS (7)
  - Vomiting [Recovered/Resolved]
  - Sciatica [Not Recovered/Not Resolved]
  - Post procedural infection [Recovered/Resolved]
  - Erosive duodenitis [Recovered/Resolved]
  - Arthritis bacterial [Recovered/Resolved]
  - Malnutrition [Not Recovered/Not Resolved]
  - Peripheral artery stenosis [Recovered/Resolved]

NARRATIVE: CASE EVENT DATE: 201609
